FAERS Safety Report 14202226 (Version 1)
Quarter: 2017Q4

REPORT INFORMATION
  Report Type: Spontaneous
  Country: JP (occurrence: JP)
  Receive Date: 20171117
  Receipt Date: 20171117
  Transmission Date: 20180321
  Serious: Yes (Hospitalization, Other)
  Sender: FDA-Public Use
  Company Number: PHJP2016JP005057

PATIENT
  Age: 57 Year
  Sex: Female

DRUGS (2)
  1. NEORAL [Suspect]
     Active Substance: CYCLOSPORINE
     Indication: STILL^S DISEASE
     Dosage: UNK
     Route: 048
  2. ACTEMRA [Suspect]
     Active Substance: TOCILIZUMAB
     Indication: STILL^S DISEASE
     Dosage: UNK
     Route: 065

REACTIONS (7)
  - Herpes zoster meningitis [Recovering/Resolving]
  - Product use in unapproved indication [Unknown]
  - Herpes zoster disseminated [Recovering/Resolving]
  - Rash [Unknown]
  - Decreased immune responsiveness [Unknown]
  - Nausea [Unknown]
  - Headache [Unknown]
